FAERS Safety Report 13047973 (Version 1)
Quarter: 2016Q4

REPORT INFORMATION
  Report Type: Spontaneous
  Country: US (occurrence: US)
  Receive Date: 20161220
  Receipt Date: 20161220
  Transmission Date: 20170207
  Serious: Yes (Hospitalization, Other)
  Sender: FDA-Public Use
  Company Number: US-PFIZER INC-2016580557

PATIENT
  Age: 85 Year
  Sex: Female

DRUGS (4)
  1. COREG [Suspect]
     Active Substance: CARVEDILOL
     Dosage: 40 MG, UNK
     Dates: start: 201603
  2. COREG [Suspect]
     Active Substance: CARVEDILOL
     Dosage: 60 MG, UNK
     Dates: start: 201608
  3. CALAN SR [Suspect]
     Active Substance: VERAPAMIL HYDROCHLORIDE
     Dosage: 240 MG, UNK
     Dates: start: 201510
  4. HYZAAR [Suspect]
     Active Substance: HYDROCHLOROTHIAZIDE\LOSARTAN POTASSIUM
     Dosage: 100 MG, DAILY

REACTIONS (7)
  - Mydriasis [Unknown]
  - Speech disorder [Unknown]
  - Toxicity to various agents [Unknown]
  - Loss of consciousness [Unknown]
  - Hypotension [Unknown]
  - Overdose [Unknown]
  - Heart rate decreased [Unknown]
